FAERS Safety Report 25219313 (Version 1)
Quarter: 2025Q2

REPORT INFORMATION
  Report Type: Spontaneous
  Country: US (occurrence: US)
  Receive Date: 20250421
  Receipt Date: 20250421
  Transmission Date: 20250716
  Serious: No
  Sender: AJANTA PHARMA USA INC
  Company Number: US-AJANTA-2025AJA00044

PATIENT

DRUGS (7)
  1. DIVALPROEX SODIUM [Suspect]
     Active Substance: DIVALPROEX SODIUM
     Indication: Epilepsy
     Dosage: 06 CAPSULES OF THE SPRINKLES TWICE A DAY (MORNING 06 AND EVENING 06) (12 CAPSULES A DAY)
     Dates: start: 20250126, end: 2025
  2. GABAPENTIN [Concomitant]
     Active Substance: GABAPENTIN
     Dosage: BY OPENING THE CAPSULES AND SPRINKLING THE MEDICATION ON FOOD
  3. CLONIDINE [Concomitant]
     Active Substance: CLONIDINE
  4. ONFI [Concomitant]
     Active Substance: CLOBAZAM
  5. LAMICTAL [Concomitant]
     Active Substance: LAMOTRIGINE
  6. MELATONIN [Concomitant]
     Active Substance: MELATONIN
  7. CANNABIS SATIVA SUBSP. INDICA TOP [Concomitant]
     Active Substance: CANNABIS SATIVA SUBSP. INDICA TOP

REACTIONS (5)
  - Abnormal faeces [Recovering/Resolving]
  - Diarrhoea [Recovering/Resolving]
  - Drug ineffective [Unknown]
  - Product residue present [Recovering/Resolving]
  - Product substitution issue [Unknown]

NARRATIVE: CASE EVENT DATE: 20250101
